FAERS Safety Report 4874747-7 (Version None)
Quarter: 2006Q1

REPORT INFORMATION
  Report Type: 
  Country: None (occurrence: None)
  Receive Date: 20060105
  Receipt Date: 20060105
  Transmission Date: 20060701
  Serious: Yes (Other)
  Sender: FDA-Public Use
  Company Number: None

PATIENT
  Age: 17 Year
  Sex: Male
  Weight: 56.6 kg

DRUGS (2)
  1. PENTAMIDINE 300 MG INJECTION-APP [Suspect]
     Indication: ANTIBIOTIC PROPHYLAXIS
     Dosage: 226 MG IV X 1
     Route: 042
     Dates: start: 20060104
  2. PENTAMIDINE 300 MG INJECTION-APP [Suspect]
     Indication: PNEUMOCYSTIS JIROVECI INFECTION
     Dosage: 226 MG IV X 1
     Route: 042
     Dates: start: 20060104

REACTIONS (1)
  - HYPOAESTHESIA ORAL [None]
